FAERS Safety Report 5484208-2 (Version None)
Quarter: 2007Q4

REPORT INFORMATION
  Report Type: 
  Country: None (occurrence: None)
  Receive Date: 20071009
  Receipt Date: 20071009
  Transmission Date: 20080405
  Serious: No
  Sender: FDA-Public Use
  Company Number: None

PATIENT
  Age: 71 Year
  Sex: Male
  Weight: 114.76 kg

DRUGS (2)
  1. ACETAMINOPHEN AND CODEINE PHOSPHATE #4 [Suspect]
     Indication: BACK PAIN
     Dosage: ONE 4 HOURS PO
     Route: 048
     Dates: start: 20070301, end: 20071009
  2. ACETAMINOPHEN AND CODEINE PHOSPHATE #4 [Suspect]
     Indication: PAIN IN EXTREMITY
     Dosage: ONE 4 HOURS PO
     Route: 048
     Dates: start: 20070301, end: 20071009

REACTIONS (2)
  - DRUG INEFFECTIVE [None]
  - PHARMACEUTICAL PRODUCT COMPLAINT [None]
